FAERS Safety Report 6097684-1 (Version None)
Quarter: 2009Q1

REPORT INFORMATION
  Report Type: 
  Country: None (occurrence: None)
  Receive Date: 20090227
  Receipt Date: 20090213
  Transmission Date: 20090719
  Serious: Yes (Hospitalization)
  Sender: FDA-Public Use
  Company Number: DE-ROCHE-616894

PATIENT
  Sex: Male
  Weight: 80.5 kg

DRUGS (14)
  1. MYCOPHENOLATE MOFETIL [Suspect]
     Indication: IMMUNOSUPPRESSION
     Dosage: FREQUENCY REPORTED AS 2.
     Route: 048
     Dates: start: 20090212
  2. ADVAGRAF [Suspect]
     Indication: IMMUNOSUPPRESSION
     Dosage: FREQUENCY REPORTED AS 1.
     Route: 048
     Dates: start: 20081028
  3. PREDNISOLONE [Suspect]
     Indication: IMMUNOSUPPRESSION
     Dosage: FREQUENCY REPORTED AS 1.
     Route: 048
     Dates: start: 20081028
  4. AMLODIPINE [Concomitant]
     Dates: start: 20081114
  5. AMPHOTERICIN B [Concomitant]
     Dosage: AMPHOMORONAL PIPETS. FREQ: 4.
     Dates: start: 20081114
  6. CALCIUM [Concomitant]
     Dosage: CALCIUM BRAUSSE.
     Dates: start: 20081114
  7. VIGANTOLETTEN [Concomitant]
     Dates: start: 20081114
  8. TAMSULOSIN HCL [Concomitant]
     Dates: start: 20081114
  9. FLUVASTATIN [Concomitant]
     Dates: start: 20081114
  10. EUTHYROX [Concomitant]
     Dates: start: 20081114
  11. METOPROLOL [Concomitant]
     Dates: start: 20081114
  12. RAMIPRIL [Concomitant]
     Dates: start: 20081114
  13. PANTOPRAZOL [Concomitant]
     Dates: start: 20081114
  14. ARANESP [Concomitant]
     Dates: start: 20081121

REACTIONS (1)
  - TRANSPLANT REJECTION [None]
